FAERS Safety Report 8038937-7 (Version None)
Quarter: 2012Q1

REPORT INFORMATION
  Report Type: 
  Country: None (occurrence: None)
  Receive Date: 20120111
  Receipt Date: 20111208
  Transmission Date: 20120608
  Serious: No
  Sender: FDA-Public Use
  Company Number: US-AMGEN-USASP2011065422

PATIENT
  Age: 18 Year
  Sex: Female

DRUGS (3)
  1. ENBREL [Suspect]
     Indication: JUVENILE ARTHRITIS
     Dosage: 25 MG, 2 TIMES/WK
     Dates: start: 20110201, end: 20110926
  2. HYDROXYCHLOROQUINE SULFATE [Concomitant]
     Dosage: UNK
  3. METHOTREXATE [Concomitant]
     Dates: start: 20090101

REACTIONS (4)
  - NAUSEA [None]
  - VOMITING [None]
  - INJECTION SITE PAIN [None]
  - INJECTION SITE HAEMATOMA [None]
